FAERS Safety Report 5040474-9 (Version None)
Quarter: 2006Q2

REPORT INFORMATION
  Report Type: 
  Country: None (occurrence: None)
  Receive Date: 20060630
  Receipt Date: 20060614
  Transmission Date: 20061013
  Serious: Yes (Hospitalization, Other)
  Sender: FDA-Public Use
  Company Number: PHFR2006GB01989

PATIENT
  Age: 61 Year
  Sex: Male

DRUGS (1)
  1. ZOMETA [Suspect]
     Indication: BONE NEOPLASM MALIGNANT
     Dosage: UNK, QMO
     Dates: start: 20040301, end: 20060301

REACTIONS (12)
  - BREATH ODOUR [None]
  - CONTUSION [None]
  - DYSGEUSIA [None]
  - GINGIVAL BLEEDING [None]
  - GINGIVAL PAIN [None]
  - IMPAIRED HEALING [None]
  - MANDIBULECTOMY [None]
  - ORAL SURGERY [None]
  - OSTEITIS [None]
  - OSTEONECROSIS [None]
  - TOOTH EXTRACTION [None]
  - TOOTH INJURY [None]
